FAERS Safety Report 9159064 (Version 1)
Quarter: 2013Q1

REPORT INFORMATION
  Report Type: Spontaneous
  Country: FR (occurrence: None)
  Receive Date: 20130213
  Receipt Date: 20130213
  Transmission Date: 20140127
  Serious: Yes (Life-Threatening, Hospitalization)
  Sender: FDA-Public Use
  Company Number: DSM-2013-00158

PATIENT
  Age: 74 Year
  Sex: Female

DRUGS (2)
  1. COOLMETEC [Suspect]
     Indication: HYPERTENSION
     Route: 048
     Dates: start: 20101201, end: 20101204
  2. METFORMIN (METFORMIN) [Suspect]
     Indication: PRODUCT USED FOR UNKNOWN INDICATION
     Route: 048
     Dates: start: 20101201, end: 20101203

REACTIONS (5)
  - Renal failure [None]
  - Lactic acidosis [None]
  - Drug interaction [None]
  - Hyperkalaemia [None]
  - Haemodialysis [None]
